FAERS Safety Report 6067810-9 (Version None)
Quarter: 2009Q1

REPORT INFORMATION
  Report Type: 
  Country: None (occurrence: None)
  Receive Date: 20090205
  Receipt Date: 20090202
  Transmission Date: 20090719
  Serious: Yes (Hospitalization)
  Sender: FDA-Public Use
  Company Number: DE-MERCK-0902DEU00004

PATIENT
  Age: 80 Year
  Sex: Male

DRUGS (5)
  1. PRIMAXIN [Suspect]
     Indication: PNEUMONIA
     Route: 042
     Dates: start: 20090127
  2. SIMVASTATIN [Concomitant]
     Route: 048
     Dates: end: 20090202
  3. METOPROLOL [Concomitant]
     Indication: HYPERTENSION
     Route: 065
  4. CAPTOPRIL [Concomitant]
     Route: 065
  5. KALINOR [Concomitant]
     Indication: HYPOKALAEMIA
     Route: 048

REACTIONS (6)
  - ALANINE AMINOTRANSFERASE INCREASED [None]
  - ASPARTATE AMINOTRANSFERASE INCREASED [None]
  - BLOOD LACTATE DEHYDROGENASE INCREASED [None]
  - MUSCLE SWELLING [None]
  - MYELODYSPLASTIC SYNDROME [None]
  - RHABDOMYOLYSIS [None]
